FAERS Safety Report 4609106-5 (Version None)
Quarter: 2005Q1

REPORT INFORMATION
  Report Type: 
  Country: None (occurrence: None)
  Receive Date: 20050311
  Receipt Date: 20050225
  Transmission Date: 20050727
  Serious: No
  Sender: FDA-Public Use
  Company Number: DSA_26002_2005

PATIENT

DRUGS (1)
  1. ATIVAN [Suspect]
     Dosage: 0.5 MG Q DAY PO
     Route: 048

REACTIONS (2)
  - LARYNGEAL OEDEMA [None]
  - URTICARIA [None]
